FAERS Safety Report 4305998-8 (Version None)
Quarter: 2004Q1

REPORT INFORMATION
  Report Type: 
  Country: None (occurrence: None)
  Receive Date: 20040225
  Receipt Date: 20040218
  Transmission Date: 20041129
  Serious: Yes (Disabling)
  Sender: FDA-Public Use
  Company Number: HQWYE765918SEP03

PATIENT
  Age: 42 Year
  Sex: Female

DRUGS (4)
  1. DIMETAPP [Suspect]
     Indication: COUGH
     Dosage: ORAL
     Route: 048
     Dates: start: 19960101, end: 19960101
  2. DIMETAPP [Suspect]
     Indication: NASOPHARYNGITIS
     Dosage: ORAL
     Route: 048
     Dates: start: 19960101, end: 19960101
  3. ALKA-SELTZER PLUS COLD (ACETYLSALICYLIC ACID/CHLORPHENAMINE MALEATE/PH [Suspect]
     Indication: NASOPHARYNGITIS
     Dosage: ^2 A DAY^, ORAL
     Route: 048
     Dates: start: 19960101, end: 19960101
  4. DIMETAPP [Suspect]
     Indication: NASOPHARYNGITIS
     Dosage: 1 TSP 1X PER 4 HR, ORAL
     Route: 048
     Dates: start: 19960101, end: 19960101

REACTIONS (2)
  - CEREBROVASCULAR ACCIDENT [None]
  - POLYTRAUMATISM [None]
